FAERS Safety Report 4403107-8 (Version None)
Quarter: 2004Q3

REPORT INFORMATION
  Report Type: 
  Country: None (occurrence: None)
  Receive Date: 20040715
  Receipt Date: 20040701
  Transmission Date: 20050211
  Serious: Yes (Hospitalization, Other)
  Sender: FDA-Public Use
  Company Number: ZONI001460

PATIENT
  Age: 43 Year
  Sex: Female

DRUGS (7)
  1. ZONEGRAN [Suspect]
     Indication: CONVULSION
     Dosage: 500 MG DAILY ORAL
     Route: 048
     Dates: start: 20040411, end: 20040622
  2. KLONOPIN (CLIONAZEPAM) [Concomitant]
  3. ZOLOFT [Concomitant]
  4. PREDNISONE TAB [Concomitant]
  5. SYNTHROID [Concomitant]
  6. TOPROL-XL [Concomitant]
  7. NEXIUM [Concomitant]

REACTIONS (5)
  - APLASTIC ANAEMIA [None]
  - BONE MARROW DEPRESSION [None]
  - CONTUSION [None]
  - FATIGUE [None]
  - SKIN REACTION [None]
